FAERS Safety Report 7761707-1 (Version None)
Quarter: 2011Q3

REPORT INFORMATION
  Report Type: 
  Country: None (occurrence: None)
  Receive Date: 20110915
  Receipt Date: 20110901
  Transmission Date: 20111222
  Serious: Yes (Other)
  Sender: FDA-Public Use
  Company Number: 2011-01021

PATIENT
  Age: 76 Year
  Sex: Male

DRUGS (9)
  1. SIMVASTATIN [Suspect]
     Indication: PRODUCT USED FOR UNKNOWN INDICATION
     Dosage: 40 MG (40 MG, 1 IN 1 D)
     Dates: start: 20110704
  2. ASPIRIN [Suspect]
     Indication: PRODUCT USED FOR UNKNOWN INDICATION
     Dosage: (75 MG)
     Dates: start: 20110517
  3. FINASTERIDE [Suspect]
     Indication: PRODUCT USED FOR UNKNOWN INDICATION
     Dosage: (5 MG), ORAL
     Route: 048
     Dates: start: 20110810
  4. SENNA (UNKNOWN) [Suspect]
     Indication: PRODUCT USED FOR UNKNOWN INDICATION
     Dosage: 7.5 MG (7.5 MG)
  5. LOSARTAN POTASSIUM [Suspect]
     Indication: PRODUCT USED FOR UNKNOWN INDICATION
     Dosage: 100 MG (100 MG, 1 IN 1 D)
     Dates: start: 20110713
  6. BETA BLOCKER (UNKNOWN) [Suspect]
     Indication: PRODUCT USED FOR UNKNOWN INDICATION
  7. CANDESARTAN CILEXETIL [Suspect]
     Indication: PRODUCT USED FOR UNKNOWN INDICATION
  8. FLECAINIDE ACETATE [Concomitant]
  9. TAMSULOSIN HCL [Suspect]
     Indication: PRODUCT USED FOR UNKNOWN INDICATION

REACTIONS (5)
  - HAEMATURIA [None]
  - VENTRICULAR EXTRASYSTOLES [None]
  - ATRIOVENTRICULAR BLOCK FIRST DEGREE [None]
  - DIZZINESS POSTURAL [None]
  - LOSS OF CONSCIOUSNESS [None]
